FAERS Safety Report 20445075 (Version 1)
Quarter: 2022Q1

REPORT INFORMATION
  Report Type: Spontaneous
  Country: US (occurrence: None)
  Receive Date: 20220208
  Receipt Date: 20220208
  Transmission Date: 20220424
  Serious: No
  Sender: FDA-Public Use
  Company Number: 2022A019467

PATIENT
  Sex: Female
  Weight: 80.7 kg

DRUGS (1)
  1. FARXIGA [Suspect]
     Active Substance: DAPAGLIFLOZIN PROPANEDIOL
     Indication: Glucose tolerance impaired
     Route: 048
     Dates: start: 20220109

REACTIONS (1)
  - Somnolence [Not Recovered/Not Resolved]
